FAERS Safety Report 21063438 (Version 1)
Quarter: 2022Q3

REPORT INFORMATION
  Report Type: Spontaneous
  Country: IR (occurrence: IR)
  Receive Date: 20220711
  Receipt Date: 20220711
  Transmission Date: 20221026
  Serious: Yes (Hospitalization, Other)
  Sender: FDA-Public Use
  Company Number: IR-AMGEN-IRNSP2022116634

PATIENT

DRUGS (1)
  1. PROLIA [Suspect]
     Active Substance: DENOSUMAB
     Indication: Osteoporosis
     Dosage: UNK
     Route: 065

REACTIONS (16)
  - Adverse event [Unknown]
  - Neoplasm [Unknown]
  - Drug specific antibody present [Unknown]
  - Adverse drug reaction [Unknown]
  - Hypertriglyceridaemia [Unknown]
  - Hypophosphataemia [Unknown]
  - Infestation [Unknown]
  - Infection [Unknown]
  - Hypertension [Unknown]
  - Back pain [Unknown]
  - Arthralgia [Unknown]
  - Nasopharyngitis [Unknown]
  - Muscle spasms [Unknown]
  - Rash [Unknown]
  - Hypocalcaemia [Unknown]
  - Musculoskeletal pain [Unknown]
